FAERS Safety Report 20653918 (Version 1)
Quarter: 2022Q1

REPORT INFORMATION
  Report Type: Spontaneous
  Country: US (occurrence: US)
  Receive Date: 20220330
  Receipt Date: 20220330
  Transmission Date: 20220423
  Serious: No
  Sender: FDA-Public Use
  Company Number: US-ORGANON-O2203USA002209

PATIENT
  Age: 17 Year
  Sex: Female
  Weight: 50.794 kg

DRUGS (3)
  1. NEXPLANON [Suspect]
     Active Substance: ETONOGESTREL
     Indication: Contraception
     Dosage: 68 MILLIGRAM ONCE
     Route: 059
     Dates: start: 20210922, end: 20220322
  2. ZOLOFT [Concomitant]
     Active Substance: SERTRALINE HYDROCHLORIDE
     Indication: Depression
     Dosage: 100 MILLIGRAM PER DAY
  3. ZOLOFT [Concomitant]
     Active Substance: SERTRALINE HYDROCHLORIDE
     Indication: Obsessive-compulsive disorder

REACTIONS (3)
  - Depression [Not Recovered/Not Resolved]
  - Depression [Unknown]
  - Obsessive-compulsive symptom [Not Recovered/Not Resolved]

NARRATIVE: CASE EVENT DATE: 20211201
